FAERS Safety Report 10688203 (Version 1)
Quarter: 2015Q1

REPORT INFORMATION
  Report Type: Spontaneous
  Country: GB (occurrence: GB)
  Receive Date: 20150102
  Receipt Date: 20150102
  Transmission Date: 20150720
  Serious: Yes (Hospitalization, Disabling, Other)
  Sender: FDA-Public Use
  Company Number: GB-WATSON-2014-27765

PATIENT
  Age: 48 Year
  Sex: Female
  Weight: 64 kg

DRUGS (2)
  1. TOPIRAMATE (UNKNOWN) [Suspect]
     Active Substance: TOPIRAMATE
     Dosage: 75 MG, DAILY, 25MG IN THE MORNING AND 50MG AT NIGHT
     Route: 048
     Dates: end: 20141105
  2. TOPIRAMATE (UNKNOWN) [Suspect]
     Active Substance: TOPIRAMATE
     Indication: MIGRAINE
     Dosage: 25 MG, DAILY, STARTED AT 25 PER DAY INCREASED TO 75 G PER DAY - 25 G MORNING AND 50G AT NIGHT
     Route: 048
     Dates: start: 20141001

REACTIONS (4)
  - Pain [Unknown]
  - Constipation [Unknown]
  - Confusional state [Recovered/Resolved]
  - Anal fissure [Not Recovered/Not Resolved]

NARRATIVE: CASE EVENT DATE: 20141007
